FAERS Safety Report 21847633 (Version 1)
Quarter: 2023Q1

REPORT INFORMATION
  Report Type: Spontaneous
  Country: FR (occurrence: FR)
  Receive Date: 20230111
  Receipt Date: 20230111
  Transmission Date: 20230418
  Serious: Yes (Other)
  Sender: FDA-Public Use
  Company Number: FR-AFSSAPS-AVLY20220512

PATIENT
  Age: 35 Year
  Sex: Male

DRUGS (2)
  1. DIAZEPAM [Suspect]
     Active Substance: DIAZEPAM
     Indication: Product used for unknown indication
     Dosage: UNK (6 ? 8 CP/J DE 10 MG AU LIEU DE 3 CP DE 10 MG PRESCRITS)
     Route: 048
     Dates: start: 2020
  2. TRAMADOL [Suspect]
     Active Substance: TRAMADOL
     Indication: Product used for unknown indication
     Dosage: UNK(8 ? 10 CP DE TRAMADOL 50 MG M?SUS? (EN PLUS DU TRAITEMENT DE FOND 300 MG/J))
     Route: 048
     Dates: start: 2020

REACTIONS (1)
  - Drug dependence [Not Recovered/Not Resolved]
